FAERS Safety Report 14305760 (Version 8)
Quarter: 2019Q1

REPORT INFORMATION
  Report Type: Spontaneous
  Country: FR (occurrence: FR)
  Receive Date: 20171219
  Receipt Date: 20190219
  Transmission Date: 20190417
  Serious: Yes (Disabling, Other)
  Sender: FDA-Public Use
  Company Number: FR-MYLANLABS-2017M1079554

PATIENT
  Age: 32 Year
  Sex: Male

DRUGS (61)
  1. NEBIVOLOL. [Suspect]
     Active Substance: NEBIVOLOL
     Dosage: 2 DOSAGE FORM, QD
     Route: 048
     Dates: start: 20110718, end: 201207
  2. RIVOTRIL [Suspect]
     Active Substance: CLONAZEPAM
     Dosage: UNK UNK, QD, 5-8 DROPS
     Route: 065
     Dates: start: 20110219, end: 20110302
  3. MIOREL [Concomitant]
     Dosage: 1 DOSAGE FORM, QD
     Route: 048
     Dates: start: 20100606
  4. STRESAM [Concomitant]
     Active Substance: ETIFOXINE
     Indication: PRODUCT USED FOR UNKNOWN INDICATION
     Dosage: UNK
     Route: 048
     Dates: start: 20120327
  5. TANGANIL [Concomitant]
     Active Substance: ACETYLLEUCINE
     Indication: PRODUCT USED FOR UNKNOWN INDICATION
     Dosage: 3 DOSAGE FORM, QD
     Route: 048
     Dates: start: 20110303
  6. DOLIPRANE [Concomitant]
     Active Substance: ACETAMINOPHEN
     Dosage: 3 DOSAGE FORM, QD, 1 DF, QD
     Route: 048
     Dates: start: 20110328
  7. NUREFLEX [Concomitant]
     Active Substance: IBUPROFEN
     Indication: PRODUCT USED FOR UNKNOWN INDICATION
     Dosage: UNK
     Route: 048
     Dates: start: 20101213
  8. RIVOTRIL [Suspect]
     Active Substance: CLONAZEPAM
     Dosage: UNK
     Route: 065
  9. CLONAZEPAM. [Suspect]
     Active Substance: CLONAZEPAM
     Indication: PRODUCT USED FOR UNKNOWN INDICATION
     Dosage: UNK, 12 DAYS
     Dates: start: 20110510
  10. CLONAZEPAM. [Suspect]
     Active Substance: CLONAZEPAM
     Dosage: UNK, 5-8 GTT, QD
     Dates: start: 20110219, end: 20110302
  11. TETRAZEPAM [Suspect]
     Active Substance: TETRAZEPAM
     Indication: PRODUCT USED FOR UNKNOWN INDICATION
     Dosage: UNK
     Route: 048
     Dates: start: 20110705
  12. TEMERIT [Suspect]
     Active Substance: NEBIVOLOL
     Dosage: 2 DOSAGE FORM, QD
     Route: 048
     Dates: start: 20110510, end: 201207
  13. MILNACIPRAN [Suspect]
     Active Substance: MILNACIPRAN
     Indication: PANIC ATTACK
     Dosage: 2 DOSAGE FORM, QD
     Route: 048
     Dates: start: 20110322
  14. DOLIPRANE [Concomitant]
     Active Substance: ACETAMINOPHEN
     Dosage: 1 DF,TID
     Route: 048
     Dates: start: 20101213
  15. PAROXETINE. [Suspect]
     Active Substance: PAROXETINE
     Indication: PRODUCT USED FOR UNKNOWN INDICATION
     Dosage: UNK(2 TO 3 WEEKS)
     Route: 048
     Dates: start: 20110201
  16. CLONAZEPAM. [Suspect]
     Active Substance: CLONAZEPAM
     Indication: NECK PAIN
     Dosage: UNK
     Dates: start: 20110718, end: 201110
  17. TEMERIT [Suspect]
     Active Substance: NEBIVOLOL
     Indication: CARDIAC DISORDER
     Dosage: 2 DOSAGE FORM, QD
     Route: 048
     Dates: start: 20110718, end: 201207
  18. SEROPRAM (CITALOPRAM HYDROBROMIDE) [Suspect]
     Active Substance: CITALOPRAM HYDROBROMIDE
     Dosage: UNK
     Route: 048
  19. MIOREL [Concomitant]
     Dosage: 1 DOSAGE FORM, QD
     Route: 048
     Dates: start: 20110201
  20. DOLIPRANE [Concomitant]
     Active Substance: ACETAMINOPHEN
     Dosage: 9 UNK
     Route: 048
     Dates: start: 20110201
  21. NEBIVOLOL. [Suspect]
     Active Substance: NEBIVOLOL
     Indication: CARDIAC DISORDER
     Dosage: 2 DOSAGE FORM, QD
     Route: 048
     Dates: start: 20110510, end: 201207
  22. TETRAZEPAM [Suspect]
     Active Substance: TETRAZEPAM
     Dosage: UNK
     Route: 048
     Dates: start: 20110726
  23. TEMERIT [Suspect]
     Active Substance: NEBIVOLOL
     Dosage: UNK, QD
     Route: 048
     Dates: start: 2011, end: 20110509
  24. DI-ANTALVIC [Suspect]
     Active Substance: ACETAMINOPHEN\PROPOXYPHENE HYDROCHLORIDE
     Dosage: 2 DOSAGE FORM, Q6H
     Route: 048
     Dates: start: 20100606
  25. MIOREL [Concomitant]
     Indication: PRODUCT USED FOR UNKNOWN INDICATION
     Dosage: 1 DOSAGE FORM, QD
     Route: 048
     Dates: start: 20101213
  26. MIOREL [Concomitant]
     Dosage: 1 DOSAGE FORM, TID
     Route: 048
     Dates: start: 20100606
  27. MIOREL [Concomitant]
     Dosage: 1 DOSAGE FORM, TID
     Route: 048
     Dates: start: 20110201
  28. VALIUM [Concomitant]
     Active Substance: DIAZEPAM
     Indication: PRODUCT USED FOR UNKNOWN INDICATION
     Dosage: 1 DOSAGE FORM, TOTAL
     Route: 051
     Dates: start: 20101115, end: 20101115
  29. DOLIPRANE [Concomitant]
     Active Substance: ACETAMINOPHEN
     Dosage: 1 DF,TID
     Route: 048
     Dates: start: 20110328
  30. PRAXINOR [Concomitant]
     Indication: PRODUCT USED FOR UNKNOWN INDICATION
     Dosage: 2 DOSAGE FORM, QD
     Route: 048
     Dates: start: 20101127
  31. RIVOTRIL [Suspect]
     Active Substance: CLONAZEPAM
     Dosage: UNK, QD
     Route: 065
     Dates: start: 20110328
  32. CLONAZEPAM. [Suspect]
     Active Substance: CLONAZEPAM
     Dosage: 15 DOSAGE FORM, QD
     Dates: start: 20110303, end: 20110327
  33. SEROPRAM (CITALOPRAM HYDROBROMIDE) [Suspect]
     Active Substance: CITALOPRAM HYDROBROMIDE
     Indication: PRODUCT USED FOR UNKNOWN INDICATION
     Dosage: UNK
     Route: 048
     Dates: start: 20110318
  34. MIOREL [Concomitant]
     Dosage: 1 DOSAGE FORM, TID
     Route: 048
     Dates: start: 20101210
  35. SOLUPRED [Concomitant]
     Indication: PRODUCT USED FOR UNKNOWN INDICATION
     Dosage: UNK
     Route: 048
     Dates: start: 20110726
  36. CITALOPRAM [Suspect]
     Active Substance: CITALOPRAM HYDROBROMIDE
     Indication: PRODUCT USED FOR UNKNOWN INDICATION
     Dosage: UNK
     Route: 048
     Dates: start: 20110318
  37. NEBIVOLOL. [Suspect]
     Active Substance: NEBIVOLOL
     Indication: PRODUCT USED FOR UNKNOWN INDICATION
     Dosage: 2 DOSAGE FORM, QD
     Route: 048
     Dates: start: 20101115, end: 20110509
  38. RIVOTRIL [Suspect]
     Active Substance: CLONAZEPAM
     Dosage: UNK
     Dates: start: 20110510
  39. AMITRIPTYLINE [Suspect]
     Active Substance: AMITRIPTYLINE
     Indication: NECK PAIN
     Dosage: UNK, 5-8 GTT, QD , 1 QD
     Dates: start: 20110219
  40. TEMERIT [Suspect]
     Active Substance: NEBIVOLOL
     Dosage: 2 DOSAGE FORM, QD
     Route: 048
     Dates: start: 20101115, end: 20110509
  41. DEXTROPROPOXYPHENE/ PARACETAMOL [Suspect]
     Active Substance: ACETAMINOPHEN\PROPOXYPHENE
     Indication: PAIN
     Dosage: 2 DOSAGE FORM, 6 HOURS
     Route: 048
     Dates: start: 20100606
  42. MIOREL [Concomitant]
     Dosage: 1 DOSAGE FORM, QD
     Route: 048
     Dates: start: 20101210
  43. MIOREL [Concomitant]
     Dosage: 3 DOSAGE FORM, QD
     Route: 048
     Dates: start: 20101210
  44. MIOREL [Concomitant]
     Dosage: 3 DOSAGE FORM, QD
     Route: 048
     Dates: start: 20110201
  45. UVEDOSE [Concomitant]
     Active Substance: CHOLECALCIFEROL
     Indication: PRODUCT USED FOR UNKNOWN INDICATION
     Dosage: 1 DF, QW, 1000000 IU
     Route: 065
     Dates: start: 20110219
  46. COVATINE [Concomitant]
     Active Substance: CAPTODIAME HYDROCHLORIDE
     Indication: PRODUCT USED FOR UNKNOWN INDICATION
     Dosage: UNK
     Route: 048
     Dates: start: 20120620, end: 201207
  47. PAROXETINE. [Suspect]
     Active Substance: PAROXETINE
     Dosage: UNK, 2 TO 3 WEEKS
     Route: 048
  48. RIVOTRIL [Suspect]
     Active Substance: CLONAZEPAM
     Dosage: 15 GTT, UNK
     Route: 065
     Dates: start: 20110303, end: 20110327
  49. TETRAZEPAM [Suspect]
     Active Substance: TETRAZEPAM
     Dosage: UNK
     Route: 048
     Dates: start: 20110228
  50. LAROXYL [Suspect]
     Active Substance: AMITRIPTYLINE HYDROCHLORIDE
     Indication: NECK PAIN
     Dosage: UNK, QD, 5-8 DROPS
     Route: 065
     Dates: start: 20110219
  51. ATARAX [Suspect]
     Active Substance: HYDROXYZINE HYDROCHLORIDE
     Indication: PRODUCT USED FOR UNKNOWN INDICATION
     Dosage: UNK
     Route: 048
     Dates: start: 20120131, end: 201207
  52. DI-ANTALVIC [Suspect]
     Active Substance: ACETAMINOPHEN\PROPOXYPHENE HYDROCHLORIDE
     Indication: PAIN
     Dosage: 2 DOSAGE FORM, QID
     Route: 048
     Dates: start: 20100606
  53. MIOREL [Concomitant]
     Dosage: 1 DOSAGE FORM, TID
     Route: 048
     Dates: start: 20101213
  54. DOLIPRANE [Concomitant]
     Active Substance: ACETAMINOPHEN
     Indication: PRODUCT USED FOR UNKNOWN INDICATION
     Dosage: 1 DF, QD
     Route: 048
     Dates: start: 20101213
  55. DOLIPRANE [Concomitant]
     Active Substance: ACETAMINOPHEN
     Dosage: 1 DF, QD
     Route: 048
     Dates: start: 20110201
  56. RIVOTRIL [Suspect]
     Active Substance: CLONAZEPAM
     Indication: NECK PAIN
     Dosage: UNK
     Route: 065
  57. RIVOTRIL [Suspect]
     Active Substance: CLONAZEPAM
     Dosage: UNK
     Dates: start: 20110718, end: 201110
  58. CLONAZEPAM. [Suspect]
     Active Substance: CLONAZEPAM
     Dosage: 1 UNK, QD
     Dates: start: 20110328
  59. IXEL [Suspect]
     Active Substance: MILNACIPRAN HYDROCHLORIDE
     Indication: PANIC ATTACK
     Dosage: 2 DOSAGE FORM, QD
     Route: 048
     Dates: start: 20110322
  60. DOLIPRANE [Concomitant]
     Active Substance: ACETAMINOPHEN
     Dosage: 1 DF, QD
     Route: 048
     Dates: start: 20110328
  61. DOLIPRANE [Concomitant]
     Active Substance: ACETAMINOPHEN
     Dosage: 1 DF,TID
     Route: 048
     Dates: start: 20110201

REACTIONS (25)
  - Limb discomfort [Unknown]
  - Drug intolerance [Unknown]
  - Pain in extremity [Unknown]
  - Panic attack [Recovered/Resolved]
  - Agoraphobia [Recovered/Resolved]
  - Hallucination, auditory [Recovered/Resolved]
  - Personal relationship issue [Recovered/Resolved]
  - Intervertebral disc disorder [Unknown]
  - Neurosis [Recovered/Resolved]
  - Suicidal ideation [Recovered/Resolved]
  - Anxiety [Recovered/Resolved]
  - Memory impairment [Recovered/Resolved]
  - Adverse event [Unknown]
  - Visual impairment [Recovered/Resolved]
  - Psychotic disorder [Recovered/Resolved]
  - Tinnitus [Recovered/Resolved]
  - Tachycardia [Recovered/Resolved]
  - Erectile dysfunction [Recovering/Resolving]
  - Asthenia [Unknown]
  - Hypoacusis [Recovered/Resolved]
  - Malaise [Recovered/Resolved]
  - Musculoskeletal pain [Unknown]
  - Post-traumatic stress disorder [Recovered/Resolved]
  - Hypertonia [Unknown]
  - Dyspnoea [Unknown]

NARRATIVE: CASE EVENT DATE: 2010
